FAERS Safety Report 12609675 (Version 2)
Quarter: 2016Q4

REPORT INFORMATION
  Report Type: Report from Study
  Country: ES (occurrence: ES)
  Receive Date: 20160801
  Receipt Date: 20161101
  Transmission Date: 20170207
  Serious: Yes (Hospitalization)
  Sender: FDA-Public Use
  Company Number: PHHY2016ES098231

PATIENT
  Age: 2 Year
  Sex: Male
  Weight: 16.6 kg

DRUGS (8)
  1. IBUPROFEN. [Concomitant]
     Active Substance: IBUPROFEN
     Indication: PRODUCT USED FOR UNKNOWN INDICATION
     Dosage: 120 MG, Q8H
     Route: 065
  2. POMED [Concomitant]
     Indication: INFECTION
     Dosage: 1 DF, Q8H
     Route: 065
  3. OXCARBAZEPINE. [Concomitant]
     Active Substance: OXCARBAZEPINE
     Indication: SEIZURE
     Dosage: 5.5-0-5.5 (36/KG)
     Route: 065
  4. CLINDAMICINA//CLINDAMYCIN HYDROCHLORIDE [Concomitant]
     Indication: INFECTION
     Dosage: 220 MG, Q8H
     Route: 065
  5. VIGABATRIN [Concomitant]
     Active Substance: VIGABATRIN
     Indication: SEIZURE
     Dosage: 500-0-500
     Route: 065
  6. NEOMYCIN [Concomitant]
     Active Substance: NEOMYCIN
     Indication: INFECTION
     Dosage: 1 DF, Q8H
     Route: 065
  7. VOTUBIA [Suspect]
     Active Substance: EVEROLIMUS
     Indication: ASTROCYTOMA, LOW GRADE
     Dosage: 7.5 MG, QD
     Route: 048
     Dates: start: 20140104, end: 20160628
  8. PREDNISONE. [Concomitant]
     Active Substance: PREDNISONE
     Indication: INFECTION
     Dosage: 1 DF, Q8H
     Route: 065

REACTIONS (6)
  - Periorbital cellulitis [Recovered/Resolved]
  - Pneumonia [Recovered/Resolved]
  - Pyrexia [Recovered/Resolved]
  - Pneumonia [Recovered/Resolved]
  - Respiratory symptom [Recovered/Resolved]
  - Pyrexia [Recovered/Resolved]

NARRATIVE: CASE EVENT DATE: 20160220
